FAERS Safety Report 21528912 (Version 2)
Quarter: 2022Q4

REPORT INFORMATION
  Report Type: Report from Study
  Country: US (occurrence: US)
  Receive Date: 20221031
  Receipt Date: 20221213
  Transmission Date: 20230112
  Serious: No
  Sender: FDA-Public Use
  Company Number: US-NOVARTISTESTPH-NVSC2022US207647

PATIENT
  Sex: Female

DRUGS (1)
  1. ENTRESTO [Suspect]
     Active Substance: SACUBITRIL\VALSARTAN
     Indication: Product used for unknown indication
     Dosage: 1 DOSAGE FORM, BID (24/26 MG)
     Route: 048

REACTIONS (8)
  - Road traffic accident [Unknown]
  - Pain [Unknown]
  - Weight decreased [Unknown]
  - COVID-19 [Unknown]
  - Oropharyngeal pain [Unknown]
  - Pyrexia [Unknown]
  - Insomnia [Unknown]
  - Chest discomfort [Unknown]
